FAERS Safety Report 21421458 (Version 2)
Quarter: 2022Q4

REPORT INFORMATION
  Report Type: Report from Study
  Country: FI (occurrence: FI)
  Receive Date: 20221007
  Receipt Date: 20221117
  Transmission Date: 20230112
  Serious: Yes (Death, Hospitalization)
  Sender: FDA-Public Use
  Company Number: FI-ABBVIE-4143428

PATIENT
  Sex: Male
  Weight: 61 kg

DRUGS (6)
  1. CARBIDOPA\LEVODOPA [Suspect]
     Active Substance: CARBIDOPA\LEVODOPA
     Indication: Parkinson^s disease
     Dosage: 2.0 ML/H
     Route: 050
     Dates: start: 20190326
  2. CARBIDOPA\LEVODOPA [Suspect]
     Active Substance: CARBIDOPA\LEVODOPA
  3. FLORINEF ACETATE [Concomitant]
     Active Substance: FLUDROCORTISONE ACETATE
     Indication: Hypotonia
     Dosage: 1 MILLIGRAM
     Route: 048
     Dates: start: 20220809
  4. QUETIAPINE [Concomitant]
     Active Substance: QUETIAPINE
     Indication: Hallucination
     Dosage: 25 MILLIGRAM
     Route: 048
     Dates: start: 20180613
  5. MOVICOL [Concomitant]
     Active Substance: POLYETHYLENE GLYCOL 3350\POTASSIUM CHLORIDE\SODIUM BICARBONATE\SODIUM CHLORIDE
     Indication: Constipation
     Dosage: 1 DOSE 1-2 TIMES PER DAY
     Route: 048
     Dates: start: 20220811
  6. TAMSULOSIN [Concomitant]
     Active Substance: TAMSULOSIN
     Indication: Urinary retention
     Dosage: 0.4 MILLIGRAM
     Route: 048
     Dates: start: 20180824

REACTIONS (3)
  - Parkinson^s disease [Fatal]
  - Fall [Unknown]
  - Anxiety [Unknown]
